FAERS Safety Report 4690493-7 (Version None)
Quarter: 2005Q2

REPORT INFORMATION
  Report Type: 
  Country: None (occurrence: None)
  Receive Date: 20050615
  Receipt Date: 20050512
  Transmission Date: 20051028
  Serious: Yes (Other)
  Sender: FDA-Public Use
  Company Number: JP-MERCK-0505USA01831

PATIENT
  Age: 62 Year
  Sex: Male
  Weight: 51 kg

DRUGS (8)
  1. PRIMAXIN [Suspect]
     Indication: PNEUMONIA
     Route: 042
     Dates: start: 20050427, end: 20050429
  2. MINOCYCLINE HCL [Concomitant]
     Indication: PNEUMONIA
     Route: 042
     Dates: start: 20050427
  3. SOLITA T-3 [Concomitant]
     Indication: PNEUMONIA
     Route: 042
     Dates: start: 20050427
  4. [THERAPY UNSPECIFIED] [Concomitant]
     Indication: PNEUMONIA
     Route: 042
     Dates: start: 20050427
  5. MEPTIN [Concomitant]
     Indication: PNEUMONIA
     Route: 048
     Dates: start: 20050427
  6. THEO-DUR [Concomitant]
     Indication: PNEUMONIA
     Route: 048
     Dates: start: 20050427
  7. BISOLVON [Concomitant]
     Indication: PNEUMONIA
     Route: 048
     Dates: start: 20050427
  8. DASEN [Concomitant]
     Indication: PNEUMONIA
     Route: 048
     Dates: start: 20050427

REACTIONS (2)
  - ANAPHYLACTIC SHOCK [None]
  - RASH [None]
